FAERS Safety Report 7978233-7 (Version None)
Quarter: 2011Q4

REPORT INFORMATION
  Report Type: 
  Country: None (occurrence: None)
  Receive Date: 20111214
  Receipt Date: 20111207
  Transmission Date: 20120403
  Serious: Yes (Other)
  Sender: FDA-Public Use
  Company Number: US-PFIZER INC-2011299959

PATIENT

DRUGS (3)
  1. LYRICA [Suspect]
     Dosage: UNK
  2. XANAX [Suspect]
     Dosage: UNK
  3. NEURONTIN [Suspect]
     Dosage: UNK

REACTIONS (4)
  - COMA [None]
  - DRUG HYPERSENSITIVITY [None]
  - HALLUCINATION [None]
  - WITHDRAWAL SYNDROME [None]
